FAERS Safety Report 4827568-5 (Version None)
Quarter: 2005Q4

REPORT INFORMATION
  Report Type: 
  Country: None (occurrence: None)
  Receive Date: 20051114
  Receipt Date: 20051103
  Transmission Date: 20060501
  Serious: Yes (Hospitalization)
  Sender: FDA-Public Use
  Company Number: PHRM2005FR02893

PATIENT
  Age: 68 Year
  Sex: Female

DRUGS (6)
  1. LEXOMIL [Concomitant]
     Dosage: 6 MG, QD
     Route: 048
  2. COTAREG [Suspect]
     Dosage: 1 DF, QD
     Route: 048
     Dates: end: 20050604
  3. LEVOTHYROX [Concomitant]
     Dosage: 1 DF, QD
     Route: 048
  4. KARDEGIC [Concomitant]
     Dosage: 75 MG, QD
     Route: 048
  5. HYPERIUM [Concomitant]
     Dosage: 2 MG, QD
     Route: 048
  6. SELOKEN [Concomitant]
     Dosage: 200 MG, QD
     Route: 048

REACTIONS (5)
  - BLOOD TRIGLYCERIDES INCREASED [None]
  - CERVICAL ROOT PAIN [None]
  - FACE OEDEMA [None]
  - HYPONATRAEMIA [None]
  - RENAL FAILURE [None]
